FAERS Safety Report 5154001-9 (Version None)
Quarter: 2006Q4

REPORT INFORMATION
  Report Type: 
  Country: None (occurrence: None)
  Receive Date: 20061120
  Receipt Date: 20061119
  Transmission Date: 20070319
  Serious: Yes (Other)
  Sender: FDA-Public Use
  Company Number: US-GLAXOSMITHKLINE-A0627996A

PATIENT

DRUGS (1)
  1. AVANDIA [Suspect]

REACTIONS (1)
  - PULMONARY HYPERTENSION [None]
